FAERS Safety Report 21227188 (Version 1)
Quarter: 2022Q3

REPORT INFORMATION
  Report Type: Spontaneous
  Country: US (occurrence: US)
  Receive Date: 20220818
  Receipt Date: 20220818
  Transmission Date: 20221027
  Serious: No
  Sender: FDA-Public Use
  Company Number: US-UNITED THERAPEUTICS-UNT-2022-014456

PATIENT
  Sex: Female
  Weight: 56.689 kg

DRUGS (6)
  1. REMODULIN [Suspect]
     Active Substance: TREPROSTINIL
     Indication: Pulmonary arterial hypertension
     Dosage: UNK, CONTINUING
     Route: 058
     Dates: start: 20220623
  2. REMODULIN [Suspect]
     Active Substance: TREPROSTINIL
     Dosage: 0.025 ?G/KG (PRE-FILLED WITH 3 ML PER CASSETTE, RATE OF 34 MCL PER HOUR), CONTINUING
     Route: 058
     Dates: start: 2022
  3. REMODULIN [Suspect]
     Active Substance: TREPROSTINIL
     Dosage: 0.026 ?G/KG, CONTINUING (PREFILLED WITH 3ML PER CASSETTE; PUMP RATE OF 35 MCL/HOUR)
     Route: 058
     Dates: start: 2022
  4. UPTRAVI [Concomitant]
     Active Substance: SELEXIPAG
     Indication: Pulmonary arterial hypertension
     Dosage: 1200 MCG, BID
     Route: 048
  5. TADALAFIL [Concomitant]
     Active Substance: TADALAFIL
     Indication: Product used for unknown indication
     Dosage: UNK
     Route: 065
  6. AMBRISENTAN [Concomitant]
     Active Substance: AMBRISENTAN
     Indication: Product used for unknown indication
     Dosage: UNK
     Route: 065

REACTIONS (7)
  - Infusion site swelling [Unknown]
  - Infusion site erythema [Unknown]
  - Device maintenance issue [Unknown]
  - Infusion site pain [Unknown]
  - Infusion site irritation [Unknown]
  - Infusion site scar [Unknown]
  - Keloid scar [Unknown]

NARRATIVE: CASE EVENT DATE: 20220101
